FAERS Safety Report 7222385-3 (Version None)
Quarter: 2011Q1

REPORT INFORMATION
  Report Type: 
  Country: None (occurrence: None)
  Receive Date: 20110112
  Receipt Date: 20110111
  Transmission Date: 20110831
  Serious: Yes (Death, Other)
  Sender: FDA-Public Use
  Company Number: CH-BAYER-201041790GPV

PATIENT
  Age: 83 Year
  Sex: Female

DRUGS (2)
  1. UNFRACTIONATED HEPARIN [Concomitant]
  2. REFLUDAN [Suspect]
     Indication: PRODUCT USED FOR UNKNOWN INDICATION
     Dosage: 1.2 MG, UNK

REACTIONS (5)
  - RENAL FAILURE [None]
  - DISEASE PROGRESSION [None]
  - STAPHYLOCOCCAL SEPSIS [None]
  - DEEP VEIN THROMBOSIS [None]
  - COAGULATION TIME PROLONGED [None]
